FAERS Safety Report 12424791 (Version 8)
Quarter: 2016Q3

REPORT INFORMATION
  Report Type: Report from Study
  Country: US (occurrence: US)
  Receive Date: 20160601
  Receipt Date: 20160920
  Transmission Date: 20161109
  Serious: Yes (Hospitalization, Other)
  Sender: FDA-Public Use
  Company Number: US-BAYER-2016-094207

PATIENT
  Age: 74 Year
  Sex: Female
  Weight: 72.11 kg

DRUGS (5)
  1. ADEMPAS [Suspect]
     Active Substance: RIOCIGUAT
     Indication: PULMONARY HYPERTENSION
     Dosage: 2 MG, TID
     Route: 048
  2. ADEMPAS [Suspect]
     Active Substance: RIOCIGUAT
     Indication: PULMONARY HYPERTENSION
     Dosage: UNK
     Dates: start: 20160422
  3. ADEMPAS [Suspect]
     Active Substance: RIOCIGUAT
     Indication: PULMONARY HYPERTENSION
     Dosage: 0.5 MG, TID
  4. ADEMPAS [Suspect]
     Active Substance: RIOCIGUAT
     Indication: PULMONARY HYPERTENSION
     Dosage: 1 MG, TID
  5. XARELTO [Concomitant]
     Active Substance: RIVAROXABAN
     Dosage: UNK

REACTIONS (19)
  - Cardiac failure [Unknown]
  - Joint swelling [Not Recovered/Not Resolved]
  - Oedema peripheral [Unknown]
  - Abnormal weight gain [Unknown]
  - Flatulence [Unknown]
  - Drug ineffective [Unknown]
  - Peripheral swelling [Not Recovered/Not Resolved]
  - Abasia [None]
  - Dyspepsia [Unknown]
  - Vomiting [Unknown]
  - Cardiac failure congestive [Unknown]
  - Staphylococcal infection [None]
  - Memory impairment [None]
  - Limb injury [Unknown]
  - Back pain [Unknown]
  - Wound secretion [Unknown]
  - Malaise [Unknown]
  - Confusional state [None]
  - Oesophageal pain [Unknown]

NARRATIVE: CASE EVENT DATE: 2016
